FAERS Safety Report 6879376-1 (Version None)
Quarter: 2010Q3

REPORT INFORMATION
  Report Type: 
  Country: None (occurrence: None)
  Receive Date: 20100728
  Receipt Date: 20100719
  Transmission Date: 20110219
  Serious: Yes (Hospitalization)
  Sender: FDA-Public Use
  Company Number: GB-CELGENEUS-167-C5013-10062291

PATIENT
  Sex: Male
  Weight: 64.5 kg

DRUGS (12)
  1. THALIDOMIDE [Suspect]
     Indication: MULTIPLE MYELOMA
     Route: 048
     Dates: start: 20100512, end: 20100620
  2. THALIDOMIDE [Suspect]
     Route: 048
     Dates: start: 20100331
  3. MELPHALAN [Suspect]
     Indication: MULTIPLE MYELOMA
     Route: 048
     Dates: start: 20100512, end: 20100620
  4. MELPHALAN [Suspect]
     Route: 048
     Dates: start: 20100331
  5. PREDNISONE [Suspect]
     Indication: MULTIPLE MYELOMA
     Route: 048
     Dates: start: 20100512, end: 20100620
  6. PREDNISONE [Suspect]
     Route: 048
     Dates: start: 20100331
  7. WARFARIN [Concomitant]
     Indication: THROMBOSIS PROPHYLAXIS
     Dosage: TITRATED TO INR
     Route: 065
     Dates: start: 20100322
  8. WARFARIN [Concomitant]
     Indication: ATRIAL FIBRILLATION
  9. NORMAL SALINE [Concomitant]
     Indication: DEHYDRATION
     Dates: start: 20100520, end: 20100520
  10. FRUSEMIDE [Concomitant]
     Route: 065
     Dates: start: 20100523
  11. SPIRONOLACTONE [Concomitant]
     Route: 065
     Dates: start: 20100525
  12. SENNA [Concomitant]
     Indication: CONSTIPATION
     Route: 065
     Dates: start: 20100608, end: 20100609

REACTIONS (1)
  - GENERAL PHYSICAL HEALTH DETERIORATION [None]
